FAERS Safety Report 21356199 (Version 1)
Quarter: 2022Q3

REPORT INFORMATION
  Report Type: Spontaneous
  Country: US (occurrence: US)
  Receive Date: 20220920
  Receipt Date: 20220920
  Transmission Date: 20221026
  Serious: Yes (Other)
  Sender: FDA-Public Use
  Company Number: US-SA-SAC20220915002070

PATIENT
  Age: 66 Year
  Sex: Male

DRUGS (1)
  1. ZANTAC [Suspect]
     Active Substance: RANITIDINE HYDROCHLORIDE
     Dosage: UNK, FREQUENCY:OTHER
     Route: 065
     Dates: start: 201501, end: 201701

REACTIONS (1)
  - Pancreatic carcinoma stage I [Recovered/Resolved]

NARRATIVE: CASE EVENT DATE: 20190801
